FAERS Safety Report 20805580 (Version 4)
Quarter: 2025Q3

REPORT INFORMATION
  Report Type: Spontaneous
  Country: EU (occurrence: EU)
  Receive Date: 20220510
  Receipt Date: 20250822
  Transmission Date: 20251021
  Serious: Yes (Hospitalization, Other)
  Sender: RANBAXY
  Company Number: EU-SUN PHARMACEUTICAL INDUSTRIES LTD-2022RR-336034

PATIENT
  Age: 59 Year
  Sex: Female

DRUGS (15)
  1. PREGABALIN [Suspect]
     Active Substance: PREGABALIN
     Indication: Mental disorder
     Dosage: 75 MILLIGRAM, BID
     Route: 065
     Dates: end: 202009
  2. PREGABALIN [Suspect]
     Active Substance: PREGABALIN
     Route: 065
  3. PREGABALIN [Suspect]
     Active Substance: PREGABALIN
     Route: 065
  4. PREGABALIN [Suspect]
     Active Substance: PREGABALIN
     Route: 065
  5. AGOMELATINE [Suspect]
     Active Substance: AGOMELATINE
     Indication: Mental disorder
     Dosage: 25 MILLIGRAM, DAILY
     Route: 065
  6. SULPIRIDE [Suspect]
     Active Substance: SULPIRIDE
     Indication: Mental disorder
     Route: 065
  7. HYDROXYZINE [Suspect]
     Active Substance: HYDROXYZINE HYDROCHLORIDE
     Indication: Mental disorder
     Route: 065
  8. Sulpiryde [Concomitant]
     Indication: Product used for unknown indication
     Route: 065
  9. HYDROXYZINE [Concomitant]
     Active Substance: HYDROXYZINE HYDROCHLORIDE
     Indication: Product used for unknown indication
     Route: 065
  10. MIANSERIN [Concomitant]
     Active Substance: MIANSERIN
     Indication: Product used for unknown indication
     Route: 065
  11. MIANSERIN [Concomitant]
     Active Substance: MIANSERIN
     Route: 065
  12. ESCITALOPRAM [Suspect]
     Active Substance: ESCITALOPRAM OXALATE
     Indication: Mental disorder
     Route: 065
  13. NEBIVOLOL [Concomitant]
     Active Substance: NEBIVOLOL
     Indication: Hypertension
     Route: 065
  14. AMLODIPINE [Suspect]
     Active Substance: AMLODIPINE BESYLATE
     Indication: Product used for unknown indication
     Route: 065
  15. FLUOXETINE [Suspect]
     Active Substance: FLUOXETINE HYDROCHLORIDE
     Indication: Mental disorder
     Dosage: 25 MILLIGRAM, DAILY
     Route: 065

REACTIONS (14)
  - Drug ineffective [Unknown]
  - Hepatic enzyme increased [Unknown]
  - Enuresis [Unknown]
  - Sedation complication [Recovered/Resolved]
  - Drug intolerance [Unknown]
  - Fear [Unknown]
  - Psychomotor hyperactivity [Unknown]
  - Off label use [Unknown]
  - Tremor [Unknown]
  - Insomnia [Unknown]
  - Anxiety [Unknown]
  - Panic reaction [Unknown]
  - Hypertension [Unknown]
  - Hepatic enzyme [Unknown]
